FAERS Safety Report 21504827 (Version 3)
Quarter: 2023Q4

REPORT INFORMATION
  Report Type: Report from Study
  Country: CA (occurrence: CA)
  Receive Date: 20221025
  Receipt Date: 20231208
  Transmission Date: 20240109
  Serious: Yes (Other)
  Sender: FDA-Public Use
  Company Number: CA-CATALYST PHARMACEUTICALS, INC-2022CAT00749

PATIENT
  Sex: Female

DRUGS (1)
  1. FIRDAPSE [Suspect]
     Active Substance: AMIFAMPRIDINE PHOSPHATE
     Indication: Myasthenic syndrome
     Dosage: 10 MG EVERY 4 HOURS UP TO 5 TIMES A DAY
     Route: 065
     Dates: end: 2023

REACTIONS (6)
  - Fatigue [Unknown]
  - Asthenia [Unknown]
  - Unevaluable event [Unknown]
  - Headache [Unknown]
  - Product substitution error [Unknown]
  - Therapeutic product effect incomplete [Unknown]
